FAERS Safety Report 12214270 (Version 1)
Quarter: 2016Q1

REPORT INFORMATION
  Report Type: Spontaneous
  Country: US (occurrence: US)
  Receive Date: 20160328
  Receipt Date: 20160328
  Transmission Date: 20160526
  Serious: No
  Sender: FDA-Public Use
  Company Number: US-BAUSCH-BL-2015-004292

PATIENT
  Age: 40 Year
  Sex: Female
  Weight: 55.39 kg

DRUGS (1)
  1. RETIN-A MICRO [Suspect]
     Active Substance: TRETINOIN
     Indication: SCAR
     Dosage: APPLY ONCE DAILY
     Route: 061
     Dates: start: 2012

REACTIONS (5)
  - Migraine [Not Recovered/Not Resolved]
  - Off label use [Unknown]
  - Alopecia [Not Recovered/Not Resolved]
  - Flushing [Not Recovered/Not Resolved]
  - Weight decreased [Not Recovered/Not Resolved]
